FAERS Safety Report 6533781-1 (Version None)
Quarter: 2010Q1

REPORT INFORMATION
  Report Type: 
  Country: None (occurrence: None)
  Receive Date: 20100111
  Receipt Date: 20090729
  Transmission Date: 20100710
  Serious: No
  Sender: FDA-Public Use
  Company Number: US-ABBOTT-09P-163-0583681-00

PATIENT
  Sex: Female
  Weight: 133.48 kg

DRUGS (17)
  1. ACETAMINOPHEN AND HYDROCODONE BITARTRATE [Suspect]
     Indication: PAIN
     Dosage: 5/500 - 5 TIMES DAILY
     Dates: start: 20090301, end: 20090702
  2. ACETAMINOPHEN AND HYDROCODONE BITARTRATE [Suspect]
     Dates: start: 20090701
  3. LEVOXYL [Concomitant]
     Indication: HYPOTHYROIDISM
  4. NEURONTIN [Concomitant]
     Indication: CONVULSION
  5. CALCIUM W/VITAMIN D [Concomitant]
     Indication: ROUTINE HEALTH MAINTENANCE
  6. BUSPAR [Concomitant]
     Indication: ANXIETY
  7. FERROUS SULFATE TAB [Concomitant]
     Indication: BLOOD IRON
  8. DOCUSATE SODIUM [Concomitant]
     Indication: HAEMORRHOIDS
  9. PROTONIX [Concomitant]
     Indication: GASTRITIS
  10. PROCARDIA XL [Concomitant]
     Indication: MIGRAINE
  11. ZETIA [Concomitant]
     Indication: BLOOD CHOLESTEROL INCREASED
  12. SERAQUEL [Concomitant]
     Indication: BIPOLAR DISORDER
  13. DIAZEPAM [Concomitant]
     Indication: ANXIETY
  14. RELPAX [Concomitant]
     Indication: MIGRAINE
  15. DYAZIDE [Concomitant]
     Indication: FLUID RETENTION
  16. VICODIN [Concomitant]
     Indication: PAIN
     Dates: start: 20030101, end: 20090301
  17. VICODIN [Concomitant]
     Dates: start: 20090701

REACTIONS (6)
  - ASTHMA [None]
  - BLOOD GLUCOSE INCREASED [None]
  - HYPERTENSION [None]
  - NAUSEA [None]
  - PAIN [None]
  - VOMITING [None]
